FAERS Safety Report 5385396-9 (Version None)
Quarter: 2007Q3

REPORT INFORMATION
  Report Type: 
  Country: None (occurrence: None)
  Receive Date: 20070712
  Receipt Date: 20070629
  Transmission Date: 20080115
  Serious: Yes (Other)
  Sender: FDA-Public Use
  Company Number: PHBS2007BR03420

PATIENT
  Sex: Female
  Weight: 106 kg

DRUGS (7)
  1. FEMARA [Suspect]
     Indication: BREAST MASS
     Dosage: 2.5 MG, QD
     Route: 048
     Dates: start: 20061215
  2. DAFLON [Concomitant]
     Dosage: 1 DF, QD
     Route: 048
  3. SIMVASTATIN [Concomitant]
     Indication: BLOOD CHOLESTEROL INCREASED
     Dosage: 20 MG, QD
     Route: 048
  4. METFORMINA [Concomitant]
     Indication: HYPERGLYCAEMIA
     Dosage: 500 MG, QD
     Route: 048
  5. DIAZEPAM [Concomitant]
     Dosage: 1 DF, QD
     Route: 048
  6. STUGERON [Concomitant]
     Indication: LABYRINTHITIS
     Dosage: 75 MG, QD
     Route: 048
  7. PIRACETAM [Concomitant]
     Indication: LABYRINTHITIS
     Dosage: 1 DF, QD
     Route: 048

REACTIONS (13)
  - ABNORMAL SLEEP-RELATED EVENT [None]
  - BLOOD THYROID STIMULATING HORMONE INCREASED [None]
  - BURNING SENSATION [None]
  - CATARACT [None]
  - COLD COMPRESS THERAPY [None]
  - CONJUNCTIVITIS [None]
  - DYSPNOEA [None]
  - FATIGUE [None]
  - FEELING HOT [None]
  - HYPERHIDROSIS [None]
  - THYROID DISORDER [None]
  - VISUAL ACUITY REDUCED [None]
  - WEIGHT INCREASED [None]
